FAERS Safety Report 9551280 (Version 21)
Quarter: 2018Q2

REPORT INFORMATION
  Report Type: Spontaneous
  Country: CA (occurrence: CA)
  Receive Date: 20130925
  Receipt Date: 20180613
  Transmission Date: 20180711
  Serious: Yes (Other)
  Sender: FDA-Public Use
  Company Number: CA-ROCHE-1278745

PATIENT
  Age: 32 Year
  Sex: Female

DRUGS (13)
  1. VENTOLINE [Concomitant]
     Active Substance: ALBUTEROL
     Indication: PRODUCT USED FOR UNKNOWN INDICATION
     Route: 065
  2. XOLAIR [Suspect]
     Active Substance: OMALIZUMAB
     Route: 058
     Dates: start: 20170703
  3. XOLAIR [Suspect]
     Active Substance: OMALIZUMAB
     Indication: ASTHMA
     Route: 058
     Dates: start: 20120305
  4. XOLAIR [Suspect]
     Active Substance: OMALIZUMAB
     Route: 058
     Dates: start: 20170116
  5. XOLAIR [Suspect]
     Active Substance: OMALIZUMAB
     Route: 058
     Dates: start: 20170605
  6. XOLAIR [Suspect]
     Active Substance: OMALIZUMAB
     Route: 058
     Dates: start: 20170925
  7. XOLAIR [Suspect]
     Active Substance: OMALIZUMAB
     Route: 058
     Dates: start: 20180115
  8. XOLAIR [Suspect]
     Active Substance: OMALIZUMAB
     Route: 058
     Dates: start: 20180604
  9. XOLAIR [Suspect]
     Active Substance: OMALIZUMAB
     Route: 058
     Dates: start: 20170914
  10. XOLAIR [Suspect]
     Active Substance: OMALIZUMAB
     Route: 058
     Dates: start: 20180129
  11. THEOPHYLLINE [Suspect]
     Active Substance: THEOPHYLLINE ANHYDROUS
     Indication: PRODUCT USED FOR UNKNOWN INDICATION
     Route: 065
  12. XOLAIR [Suspect]
     Active Substance: OMALIZUMAB
     Route: 058
     Dates: start: 20180423
  13. SPIRIVA [Concomitant]
     Active Substance: TIOTROPIUM BROMIDE MONOHYDRATE
     Indication: PRODUCT USED FOR UNKNOWN INDICATION
     Route: 065

REACTIONS (34)
  - Bronchitis [Recovered/Resolved]
  - Chest pain [Recovering/Resolving]
  - Ovarian cyst ruptured [Recovering/Resolving]
  - Body temperature decreased [Unknown]
  - Pyelonephritis [Unknown]
  - Complex regional pain syndrome [Unknown]
  - Asthma [Unknown]
  - Sinusitis [Recovered/Resolved]
  - Sputum abnormal [Unknown]
  - Ligament sprain [Recovering/Resolving]
  - Throat tightness [Unknown]
  - Productive cough [Recovering/Resolving]
  - Seasonal allergy [Unknown]
  - Nasal septum deviation [Unknown]
  - Diarrhoea [Recovered/Resolved]
  - Aphonia [Unknown]
  - Fall [Unknown]
  - Biliary colic [Recovered/Resolved]
  - Migraine [Recovering/Resolving]
  - Pain [Recovering/Resolving]
  - Food allergy [Unknown]
  - Influenza [Recovering/Resolving]
  - Nausea [Recovered/Resolved]
  - Ovarian cyst [Unknown]
  - Rash [Recovering/Resolving]
  - Contusion [Recovering/Resolving]
  - Eosinophil count increased [Unknown]
  - Headache [Not Recovered/Not Resolved]
  - Abdominal pain upper [Unknown]
  - Oedema peripheral [Recovering/Resolving]
  - Nasal inflammation [Not Recovered/Not Resolved]
  - Respiratory tract infection [Unknown]
  - Nasopharyngitis [Recovering/Resolving]
  - Dizziness [Recovered/Resolved]

NARRATIVE: CASE EVENT DATE: 201302
